FAERS Safety Report 15206104 (Version 1)
Quarter: 2018Q3

REPORT INFORMATION
  Report Type: Spontaneous
  Country: FR (occurrence: FR)
  Receive Date: 20180727
  Receipt Date: 20180727
  Transmission Date: 20181010
  Serious: Yes (Life-Threatening)
  Sender: FDA-Public Use
  Company Number: FR-TEVA-2018-FR-931095

PATIENT
  Age: 28 Year
  Sex: Female

DRUGS (4)
  1. TERALITHE [Suspect]
     Active Substance: LITHIUM CARBONATE
     Indication: PSYCHOTIC DISORDER
     Dosage: 800 MILLIGRAM DAILY;
     Route: 048
     Dates: start: 20180523, end: 20180607
  2. LOXAPAC [Suspect]
     Active Substance: LOXAPINE
     Indication: PSYCHOTIC DISORDER
     Dosage: 25 GTT DAILY;
     Route: 048
     Dates: start: 20180525, end: 20180607
  3. RIVOTRIL [Concomitant]
     Active Substance: CLONAZEPAM
     Dosage: 60 GTT DAILY;
     Route: 048
     Dates: start: 20180525, end: 20180613
  4. QUETIAPINE. [Suspect]
     Active Substance: QUETIAPINE
     Indication: PSYCHOTIC DISORDER
     Dosage: 600 MILLIGRAM DAILY;
     Route: 048
     Dates: start: 20180525, end: 20180607

REACTIONS (3)
  - Large intestinal obstruction [Recovered/Resolved with Sequelae]
  - Gastrointestinal necrosis [Recovered/Resolved with Sequelae]
  - Constipation [Recovered/Resolved with Sequelae]

NARRATIVE: CASE EVENT DATE: 20180601
